FAERS Safety Report 4824697-7 (Version None)
Quarter: 2005Q4

REPORT INFORMATION
  Report Type: 
  Country: None (occurrence: None)
  Receive Date: 20051108
  Receipt Date: 20051020
  Transmission Date: 20060501
  Serious: Yes (Hospitalization)
  Sender: FDA-Public Use
  Company Number: DE_051017265

PATIENT
  Age: 13 Year
  Sex: Male

DRUGS (2)
  1. STRATTERA [Suspect]
     Indication: ASOCIAL BEHAVIOUR
     Dosage: 40 MG
     Dates: start: 20050501, end: 20050901
  2. STRATTERA [Suspect]
     Indication: EMOTIONAL DISORDER
     Dosage: 40 MG
     Dates: start: 20050501, end: 20050901

REACTIONS (1)
  - SUICIDE ATTEMPT [None]
